FAERS Safety Report 18559781 (Version 2)
Quarter: 2020Q4

REPORT INFORMATION
  Report Type: Spontaneous
  Country: US (occurrence: US)
  Receive Date: 20201130
  Receipt Date: 20201217
  Transmission Date: 20210114
  Serious: Yes (Other)
  Sender: FDA-Public Use
  Company Number: US-BELCHER PHARMACEUTICALS, LLC-2020US007508

PATIENT
  Age: 68 Year

DRUGS (1)
  1. EPINEPHRINE INJECTION USP [Suspect]
     Active Substance: EPINEPHRINE
     Indication: CATARACT OPERATION
     Dosage: 1 MG/ML

REACTIONS (3)
  - Off label use [Unknown]
  - Toxic anterior segment syndrome [Recovering/Resolving]
  - Product complaint [Unknown]

NARRATIVE: CASE EVENT DATE: 20201110
